FAERS Safety Report 5263314-1 (Version None)
Quarter: 2007Q1

REPORT INFORMATION
  Report Type: 
  Country: None (occurrence: None)
  Receive Date: 20061219
  Receipt Date: 20060831
  Transmission Date: 20070707
  Serious: No
  Sender: FDA-Public Use
  Company Number: 2006US001998

PATIENT
  Age: 68 Year
  Sex: Female

DRUGS (7)
  1. VESICARE [Suspect]
     Indication: DRUG USE FOR UNKNOWN INDICATION
     Dosage: 5 MG, QOD, ORAL
     Route: 048
     Dates: start: 20060828
  2. LUMIGAN [Concomitant]
  3. HORMONE REPLACEMENT THERAPY [Concomitant]
  4. MOBIC [Concomitant]
  5. MVI (VITAMINS NOS) [Concomitant]
  6. FISH OIL (FISH OIL) [Concomitant]
  7. VITAMIN E (HERBAL OIL NOS) [Concomitant]

REACTIONS (1)
  - DRY EYE [None]
